FAERS Safety Report 19844668 (Version 1)
Quarter: 2021Q3

REPORT INFORMATION
  Report Type: Spontaneous
  Country: US (occurrence: US)
  Receive Date: 20210915
  Receipt Date: 20210915
  Transmission Date: 20211014
  Serious: Yes (Hospitalization)
  Sender: FDA-Public Use
  Company Number: None

PATIENT
  Sex: Male
  Weight: 80 kg

DRUGS (4)
  1. TAXOL [Concomitant]
     Active Substance: PACLITAXEL
  2. PEGFILGRASTIM (NEGULASTA) [Concomitant]
  3. IFOSFAMIDE. [Suspect]
     Active Substance: IFOSFAMIDE
  4. CISPLATIN. [Concomitant]
     Active Substance: CISPLATIN

REACTIONS (5)
  - Platelet count decreased [None]
  - White blood cell count decreased [None]
  - Haemoglobin decreased [None]
  - Red blood cell count decreased [None]
  - Febrile neutropenia [None]

NARRATIVE: CASE EVENT DATE: 20210906
